FAERS Safety Report 10262146 (Version 2)
Quarter: 2014Q3

REPORT INFORMATION
  Report Type: Spontaneous
  Country: US (occurrence: US)
  Receive Date: 20140626
  Receipt Date: 20140818
  Transmission Date: 20150326
  Serious: Yes (Death, Hospitalization, Other)
  Sender: FDA-Public Use
  Company Number: US-009507513-1406USA012505

PATIENT
  Sex: Female
  Weight: 61.22 kg

DRUGS (2)
  1. JANUVIA [Suspect]
     Active Substance: SITAGLIPTIN PHOSPHATE
     Indication: TYPE 2 DIABETES MELLITUS
     Dosage: 25 MG, QD
     Route: 048
     Dates: start: 20110104, end: 20120629
  2. JANUVIA [Suspect]
     Active Substance: SITAGLIPTIN PHOSPHATE
     Dosage: 100 MG, UNK
     Route: 048
     Dates: start: 20110104, end: 20120614

REACTIONS (21)
  - Pancreatic carcinoma [Unknown]
  - Cholelithiasis [Unknown]
  - Appendicectomy [Unknown]
  - Death [Fatal]
  - Renal failure acute [Recovered/Resolved]
  - Hypoglycaemia [Unknown]
  - Thrombocytopenia [Unknown]
  - Dysphagia [Unknown]
  - Metastases to liver [Unknown]
  - Ascites [Unknown]
  - Iron deficiency anaemia [Unknown]
  - Normochromic normocytic anaemia [Unknown]
  - Candida infection [Unknown]
  - Oropharyngeal candidiasis [Unknown]
  - Mucosal inflammation [Unknown]
  - Intestinal obstruction [Unknown]
  - Microcytic anaemia [Unknown]
  - Anaemia of chronic disease [Unknown]
  - Arteriosclerosis coronary artery [Unknown]
  - Hyponatraemia [Unknown]
  - Transaminases increased [Unknown]

NARRATIVE: CASE EVENT DATE: 20120626
